FAERS Safety Report 8490048-2 (Version None)
Quarter: 2012Q3

REPORT INFORMATION
  Report Type: 
  Country: None (occurrence: None)
  Receive Date: 20120705
  Receipt Date: 20120627
  Transmission Date: 20120928
  Serious: No
  Sender: FDA-Public Use
  Company Number: US-JNJFOC-20120700469

PATIENT
  Sex: Male
  Weight: 90.72 kg

DRUGS (7)
  1. WELLBUTRIN [Concomitant]
     Indication: DEPRESSION
     Route: 048
  2. SEROQUEL [Concomitant]
     Indication: SLEEP DISORDER
     Route: 048
  3. INVEGA [Suspect]
     Indication: SCHIZOPHRENIA
     Route: 048
  4. ATIVAN [Concomitant]
     Indication: ANXIETY
     Route: 048
  5. NEURONTIN [Concomitant]
     Indication: DRUG THERAPY
     Route: 048
  6. SEROQUEL [Concomitant]
     Indication: SCHIZOPHRENIA
     Route: 048
  7. LITHOBID [Concomitant]
     Indication: DRUG THERAPY
     Route: 048

REACTIONS (1)
  - ERECTILE DYSFUNCTION [None]
